FAERS Safety Report 5196259-6 (Version None)
Quarter: 2007Q1

REPORT INFORMATION
  Report Type: 
  Country: None (occurrence: None)
  Receive Date: 20070102
  Receipt Date: 20061221
  Transmission Date: 20070707
  Serious: Yes (Death, Hospitalization)
  Sender: FDA-Public Use
  Company Number: JP-PFIZER INC-2006148379

PATIENT
  Age: 71 Year
  Sex: Male

DRUGS (25)
  1. ZYVOX [Suspect]
     Indication: PNEUMONIA STAPHYLOCOCCAL
     Dosage: DAILY DOSE:1200MG
     Route: 042
     Dates: start: 20060428, end: 20060613
  2. ASPIRIN [Concomitant]
     Route: 048
     Dates: start: 20060401, end: 20060430
  3. NORVASC [Concomitant]
     Route: 048
     Dates: start: 20060401, end: 20060430
  4. TAKEPRON [Concomitant]
     Route: 048
     Dates: start: 20060401, end: 20060430
  5. TPN [Concomitant]
     Route: 048
     Dates: start: 20060429, end: 20060430
  6. PN TWIN [Concomitant]
     Route: 042
  7. NEOLAMIN MULTI [Concomitant]
     Route: 042
  8. ELEMENMIC [Concomitant]
     Route: 042
  9. POTASSIUM CHLORIDE [Concomitant]
     Route: 042
  10. FESIN [Concomitant]
     Route: 042
     Dates: start: 20060413, end: 20060621
  11. PRODIF [Concomitant]
     Route: 042
  12. FOY [Concomitant]
     Route: 042
  13. ALL OTHER THERAPEUTIC PRODUCTS [Concomitant]
     Route: 042
  14. DIPRIVAN [Concomitant]
     Route: 042
     Dates: start: 20060602, end: 20060616
  15. MUSCULAX [Concomitant]
     Route: 042
  16. INOVAN [Concomitant]
     Route: 042
  17. DIALYSATE [Concomitant]
     Route: 042
  18. MICAFUNGIN [Concomitant]
     Route: 042
     Dates: start: 20060519, end: 20060606
  19. TIENAM [Concomitant]
     Route: 042
     Dates: start: 20060414, end: 20060618
  20. GASTER [Concomitant]
     Route: 048
     Dates: start: 20060521, end: 20060928
  21. LASIX [Concomitant]
     Route: 048
  22. LASIX [Concomitant]
     Route: 048
     Dates: start: 20060429, end: 20060831
  23. ALDACTONE [Concomitant]
     Route: 048
     Dates: start: 20060529, end: 20060604
  24. DEPAS [Concomitant]
     Route: 048
     Dates: start: 20060602, end: 20060615
  25. LASIX [Concomitant]
     Route: 042

REACTIONS (2)
  - DEATH [None]
  - THROMBOCYTOPENIA [None]
